FAERS Safety Report 10979254 (Version 2)
Quarter: 2015Q3

REPORT INFORMATION
  Report Type: Spontaneous
  Country: US (occurrence: US)
  Receive Date: 20150402
  Receipt Date: 20150709
  Transmission Date: 20151125
  Serious: Yes (Hospitalization)
  Sender: FDA-Public Use
  Company Number: US-BAYER-2015-099197

PATIENT
  Age: 24 Year
  Sex: Female
  Weight: 131.52 kg

DRUGS (4)
  1. MIRENA [Suspect]
     Active Substance: LEVONORGESTREL
     Indication: CONTRACEPTION
     Dosage: 20 MCG/24HR, CONT
     Route: 015
     Dates: start: 20060608, end: 20091221
  2. PRENATAL VITAMINS [Concomitant]
     Active Substance: VITAMINS
  3. PROVENTIL [Concomitant]
     Active Substance: ALBUTEROL
  4. FLOVENT [Concomitant]
     Active Substance: FLUTICASONE PROPIONATE

REACTIONS (8)
  - Uterine perforation [None]
  - Device difficult to use [None]
  - Emotional distress [None]
  - Anxiety [None]
  - Embedded device [None]
  - Pain [None]
  - Injury [None]
  - Depression [None]

NARRATIVE: CASE EVENT DATE: 2009
